FAERS Safety Report 7332419-3 (Version None)
Quarter: 2011Q1

REPORT INFORMATION
  Report Type: 
  Country: None (occurrence: None)
  Receive Date: 20110304
  Receipt Date: 20110224
  Transmission Date: 20110831
  Serious: Yes (Other)
  Sender: FDA-Public Use
  Company Number: US-CEPHALON-2011000927

PATIENT
  Sex: Male
  Weight: 70 kg

DRUGS (4)
  1. MULTI-VITAMINS [Concomitant]
  2. PRILOSEC [Concomitant]
     Dates: start: 20100601
  3. NUVIGIL [Suspect]
     Indication: SLEEP APNOEA SYNDROME
     Route: 048
     Dates: start: 20101201
  4. LEXAPRO [Concomitant]

REACTIONS (7)
  - TEARFULNESS [None]
  - AGITATION [None]
  - AGGRESSION [None]
  - ANXIETY [None]
  - DISTURBANCE IN ATTENTION [None]
  - DYSKINESIA [None]
  - RESTLESSNESS [None]
